FAERS Safety Report 21099708 (Version 1)
Quarter: 2022Q3

REPORT INFORMATION
  Report Type: Spontaneous
  Country: US (occurrence: US)
  Receive Date: 20220719
  Receipt Date: 20220719
  Transmission Date: 20221027
  Serious: Yes (Other)
  Sender: FDA-Public Use
  Company Number: US-ALLERGAN-2221756US

PATIENT
  Sex: Female
  Weight: 86.182 kg

DRUGS (1)
  1. REFRESH TEARS [Suspect]
     Active Substance: CARBOXYMETHYLCELLULOSE SODIUM
     Indication: Dry eye
     Dosage: 3 TO 4 TIMES DAILY
     Route: 047
     Dates: start: 2018

REACTIONS (1)
  - Cataract [Recovered/Resolved]
